FAERS Safety Report 12090955 (Version 1)
Quarter: 2016Q1

REPORT INFORMATION
  Report Type: Report from Study
  Country: QA (occurrence: QA)
  Receive Date: 20160218
  Receipt Date: 20160218
  Transmission Date: 20160526
  Serious: Yes (Hospitalization)
  Sender: FDA-Public Use
  Company Number: QA-B.I. PHARMACEUTICALS,INC./RIDGEFIELD-2016-BI-09847BI

PATIENT

DRUGS (3)
  1. COMBIVENT [Suspect]
     Active Substance: ALBUTEROL SULFATE\IPRATROPIUM BROMIDE
     Indication: PRODUCT USED FOR UNKNOWN INDICATION
     Dosage: DOSING STRENGTH - 5 MG/ML ADMINISTERED OVER 1 HR
     Route: 065
  2. METHYL PREDNISONE [Concomitant]
     Indication: PRODUCT USED FOR UNKNOWN INDICATION
     Dosage: DOSING - 1 MG/KG IV EVERY 12 HR
     Route: 042
  3. COMBIVENT [Suspect]
     Active Substance: ALBUTEROL SULFATE\IPRATROPIUM BROMIDE
     Dosage: ADMINISTERED OVER 1 HR
     Route: 065

REACTIONS (1)
  - Status asthmaticus [Unknown]
